FAERS Safety Report 21156352 (Version 1)
Quarter: 2022Q3

REPORT INFORMATION
  Report Type: Spontaneous
  Country: US (occurrence: US)
  Receive Date: 20220801
  Receipt Date: 20220801
  Transmission Date: 20221026
  Serious: No
  Sender: FDA-Public Use
  Company Number: US-PADAGIS-2022PAD00238

PATIENT

DRUGS (2)
  1. TRETINOIN [Suspect]
     Active Substance: TRETINOIN
     Indication: Skin wrinkling
     Dosage: 1 DF, QD
     Route: 061
     Dates: start: 20220610
  2. TRETINOIN [Suspect]
     Active Substance: TRETINOIN
     Indication: Skin texture abnormal
     Dosage: UNK
     Route: 065
     Dates: start: 20220621

REACTIONS (1)
  - Off label use [Unknown]

NARRATIVE: CASE EVENT DATE: 20220621
